FAERS Safety Report 14454743 (Version 3)
Quarter: 2018Q3

REPORT INFORMATION
  Report Type: Spontaneous
  Country: US (occurrence: US)
  Receive Date: 20180129
  Receipt Date: 20180808
  Transmission Date: 20181010
  Serious: Yes (Hospitalization)
  Sender: FDA-Public Use
  Company Number: US-DSJP-DSU-2017-139626

PATIENT

DRUGS (4)
  1. BENICAR [Suspect]
     Active Substance: OLMESARTAN MEDOXOMIL
     Indication: PRODUCT USED FOR UNKNOWN INDICATION
     Dosage: 40 MG, QD
     Route: 048
     Dates: start: 20070101
  2. BENICAR [Suspect]
     Active Substance: OLMESARTAN MEDOXOMIL
     Dosage: 20 MG HALF TABLET, QD
     Dates: start: 20070905
  3. BENICAR HCT [Suspect]
     Active Substance: HYDROCHLOROTHIAZIDE\OLMESARTAN MEDOXOMIL
     Indication: PRODUCT USED FOR UNKNOWN INDICATION
     Dosage: 40?25 MG, QD
     Route: 048
     Dates: start: 20070101, end: 20131222
  4. BENICAR [Suspect]
     Active Substance: OLMESARTAN MEDOXOMIL
     Dosage: 20 MG, QD
     Route: 048
     Dates: start: 20070101

REACTIONS (12)
  - Gastrooesophageal reflux disease [Unknown]
  - Impaired gastric emptying [Not Recovered/Not Resolved]
  - Chronic kidney disease [Not Recovered/Not Resolved]
  - Haemorrhoids [Unknown]
  - Pancreatitis chronic [Recovering/Resolving]
  - Acute kidney injury [Recovering/Resolving]
  - Diverticulum [Unknown]
  - Hypotension [Recovering/Resolving]
  - Sprue-like enteropathy [Recovering/Resolving]
  - Cholelithiasis [Recovered/Resolved]
  - Hiatus hernia [Unknown]
  - Drug administration error [Unknown]

NARRATIVE: CASE EVENT DATE: 20070131
